FAERS Safety Report 7878668-7 (Version None)
Quarter: 2011Q4

REPORT INFORMATION
  Report Type: 
  Country: None (occurrence: None)
  Receive Date: 20111018
  Receipt Date: 20110412
  Transmission Date: 20120403
  Serious: Yes (Disabling)
  Sender: FDA-Public Use
  Company Number: 2011P1005931

PATIENT
  Age: 49 Year
  Sex: Male
  Weight: 72.5755 kg

DRUGS (3)
  1. FENTANYL [Suspect]
     Indication: PAIN
     Dosage: 1 PATCH;Q72H;TOP
     Route: 061
     Dates: start: 19960101
  2. PERCOCET OR NORCO [Concomitant]
  3. FENTANYL [Suspect]
     Indication: PAIN
     Dosage: 1 PATCH;Q72H; TOP
     Route: 061
     Dates: start: 19960101

REACTIONS (6)
  - INSOMNIA [None]
  - BEDRIDDEN [None]
  - PRODUCT ADHESION ISSUE [None]
  - PAIN [None]
  - MOBILITY DECREASED [None]
  - DIARRHOEA [None]
